FAERS Safety Report 18638211 (Version 1)
Quarter: 2020Q4

REPORT INFORMATION
  Report Type: Spontaneous
  Country: US (occurrence: US)
  Receive Date: 20201219
  Receipt Date: 20201219
  Transmission Date: 20210114
  Serious: No
  Sender: FDA-Public Use
  Company Number: US-B.I. PHARMACEUTICALS,INC./RIDGEFIELD-2020-BI-067980

PATIENT
  Sex: Male

DRUGS (1)
  1. PRADAXA [Suspect]
     Active Substance: DABIGATRAN ETEXILATE MESYLATE
     Indication: PRODUCT USED FOR UNKNOWN INDICATION
     Dosage: 75 MG
     Route: 065

REACTIONS (8)
  - Skin haemorrhage [Unknown]
  - Skin atrophy [Unknown]
  - Scab [Unknown]
  - Contusion [Unknown]
  - Anal haemorrhage [Unknown]
  - Epistaxis [Unknown]
  - Skin laceration [Unknown]
  - Discomfort [Unknown]
